FAERS Safety Report 8998585 (Version 1)
Quarter: 2013Q1

REPORT INFORMATION
  Report Type: Spontaneous
  Country: IE (occurrence: IE)
  Receive Date: 20130103
  Receipt Date: 20130103
  Transmission Date: 20140127
  Serious: Yes (Other)
  Sender: FDA-Public Use
  Company Number: IE-ROCHE-1174882

PATIENT
  Age: 69 Year
  Sex: Male
  Weight: 80 kg

DRUGS (20)
  1. ALTEPLASE [Suspect]
     Indication: HAEMODIALYSIS
     Dosage: 2 ML-2.23 ML
     Route: 042
     Dates: start: 20100720
  2. ALTEPLASE [Suspect]
     Dosage: 2 ML-2.23 ML
     Route: 042
     Dates: start: 20100907, end: 2010
  3. PRESSALIN [Concomitant]
     Route: 048
     Dates: start: 2010
  4. ASPIRIN [Concomitant]
     Route: 048
  5. ALLOPURINOL [Concomitant]
     Indication: GOUT
     Route: 048
  6. ATENOLOL [Concomitant]
     Indication: BLOOD PRESSURE
     Route: 048
     Dates: start: 2006
  7. RENAGEL [Concomitant]
     Route: 048
     Dates: start: 2007
  8. COLCHICINE [Concomitant]
     Indication: GOUT
     Route: 048
     Dates: start: 2008
  9. DIGOXIN [Concomitant]
     Indication: ATRIAL FIBRILLATION
     Route: 048
  10. OROVITE [Concomitant]
     Route: 048
     Dates: start: 2007
  11. NEORECORMON [Concomitant]
     Route: 058
  12. LERCANIDIPINE [Concomitant]
     Indication: BLOOD PRESSURE
     Route: 048
     Dates: start: 2006
  13. LERCANIDIPINE [Concomitant]
     Route: 048
     Dates: start: 2008
  14. COZAAR [Concomitant]
     Indication: BLOOD PRESSURE
     Route: 048
     Dates: start: 201004
  15. FOLIC ACID [Concomitant]
     Route: 048
  16. FUROSEMIDE [Concomitant]
     Route: 048
     Dates: start: 2007
  17. ONE ALPHA [Concomitant]
     Indication: VITAMIN D
     Dosage: 250 NANO
     Route: 048
     Dates: start: 2007
  18. VENOFER [Concomitant]
     Indication: BLOOD IRON
     Route: 042
     Dates: start: 2007
  19. ESOMEPRAZOLE [Concomitant]
     Route: 065
     Dates: start: 201004
  20. ROSUVASTATIN [Concomitant]
     Route: 065
     Dates: start: 201004

REACTIONS (3)
  - Alopecia [Unknown]
  - Nausea [Unknown]
  - Pruritus [Unknown]
